FAERS Safety Report 13722167 (Version 2)
Quarter: 2017Q3

REPORT INFORMATION
  Report Type: Spontaneous
  Country: US (occurrence: US)
  Receive Date: 20170706
  Receipt Date: 20170713
  Transmission Date: 20171127
  Serious: No
  Sender: FDA-Public Use
  Company Number: US-PFIZER INC-2017285313

PATIENT
  Age: 73 Year
  Sex: Female
  Weight: 62.6 kg

DRUGS (5)
  1. GABAPENTIN. [Suspect]
     Active Substance: GABAPENTIN
     Indication: NERVOUS SYSTEM DISORDER
     Dosage: 300 MG, 3X/DAY
     Route: 048
     Dates: start: 20170602
  2. GINGER. [Concomitant]
     Active Substance: GINGER
     Indication: ANTIINFLAMMATORY THERAPY
     Dosage: 2 DF, DAILY
     Route: 048
     Dates: start: 201706
  3. PROZAC [Suspect]
     Active Substance: FLUOXETINE HYDROCHLORIDE
     Indication: TREMOR
  4. GABAPENTIN. [Suspect]
     Active Substance: GABAPENTIN
     Indication: TREMOR
     Dosage: 200 MG, 3X/DAY
     Route: 048
  5. PROZAC [Suspect]
     Active Substance: FLUOXETINE HYDROCHLORIDE
     Indication: NERVOUS SYSTEM DISORDER
     Dosage: UNK
     Dates: end: 20170625

REACTIONS (5)
  - Drug effect delayed [Not Recovered/Not Resolved]
  - Product use in unapproved indication [Unknown]
  - Somnolence [Unknown]
  - Intentional product use issue [Unknown]
  - Feeling abnormal [Not Recovered/Not Resolved]

NARRATIVE: CASE EVENT DATE: 20170602
